FAERS Safety Report 8054807-2 (Version None)
Quarter: 2012Q1

REPORT INFORMATION
  Report Type: 
  Country: None (occurrence: None)
  Receive Date: 20120112
  Receipt Date: 20120105
  Transmission Date: 20120608
  Serious: Yes (Hospitalization, Other)
  Sender: FDA-Public Use
  Company Number: NSR_00344_2012

PATIENT
  Age: 21 Year
  Sex: Male

DRUGS (1)
  1. BACLOFEN [Suspect]
     Indication: PRODUCT USED FOR UNKNOWN INDICATION
     Dosage: (200 MG 1 X)

REACTIONS (8)
  - BLOOD CREATININE INCREASED [None]
  - BLOOD PRESSURE SYSTOLIC INCREASED [None]
  - OVERDOSE [None]
  - RESPIRATORY RATE INCREASED [None]
  - HYPERREFLEXIA [None]
  - BLOOD UREA INCREASED [None]
  - HAEMODIALYSIS [None]
  - MYDRIASIS [None]
